FAERS Safety Report 7301205-2 (Version None)
Quarter: 2011Q1

REPORT INFORMATION
  Report Type: 
  Country: None (occurrence: None)
  Receive Date: 20110218
  Receipt Date: 20110207
  Transmission Date: 20110831
  Serious: Yes (Other)
  Sender: FDA-Public Use
  Company Number: JP-ELI_LILLY_AND_COMPANY-JP201102002179

PATIENT
  Age: 83 Year
  Sex: Female

DRUGS (3)
  1. FORTEO [Suspect]
     Dosage: 20 UG, DAILY (1/D)
     Route: 058
     Dates: start: 20110205, end: 20110207
  2. FLOMOX [Concomitant]
     Dosage: 300 MG, DAILY (1/D)
     Route: 048
  3. CELECOX [Concomitant]
     Dosage: 100 MG, DAILY (1/D)
     Route: 048

REACTIONS (2)
  - BLOOD PRESSURE DECREASED [None]
  - CONVULSION [None]
